FAERS Safety Report 7557871-X (Version None)
Quarter: 2011Q2

REPORT INFORMATION
  Report Type: 
  Country: None (occurrence: None)
  Receive Date: 20110620
  Receipt Date: 20110601
  Transmission Date: 20111010
  Serious: Yes (Hospitalization)
  Sender: FDA-Public Use
  Company Number: A0787769A

PATIENT
  Age: 74 Year
  Sex: Female
  Weight: 88.2 kg

DRUGS (2)
  1. AVANDIA [Suspect]
     Indication: DIABETES MELLITUS
     Route: 048
     Dates: start: 20061019, end: 20070508
  2. GLIPIZIDE [Concomitant]

REACTIONS (1)
  - MYOCARDIAL INFARCTION [None]
